FAERS Safety Report 8321896-7 (Version None)
Quarter: 2012Q2

REPORT INFORMATION
  Report Type: 
  Country: None (occurrence: None)
  Receive Date: 20120426
  Receipt Date: 20120413
  Transmission Date: 20120825
  Serious: Yes (Other)
  Sender: FDA-Public Use
  Company Number: 2012AP001042

PATIENT
  Age: 78 Year
  Sex: Male

DRUGS (6)
  1. OMEPRAZOLE [Suspect]
     Indication: PRODUCT USED FOR UNKNOWN INDICATION
     Dosage: CAP; PO
     Route: 048
     Dates: start: 20060824
  2. SERTRALINE HYDROCHLORIDE [Suspect]
     Indication: PRODUCT USED FOR UNKNOWN INDICATION
     Dosage: PO
     Route: 048
     Dates: start: 20090622
  3. QUETIAPINE FUMARATE [Suspect]
     Indication: PRODUCT USED FOR UNKNOWN INDICATION
     Dosage: PO
     Route: 048
     Dates: start: 20090622
  4. CLOMETHIAZOLE (CLOMETHIAZOLE) [Concomitant]
  5. HALOPERIDOL [Suspect]
     Indication: DEPRESSION
     Dosage: PO
     Route: 048
     Dates: start: 20011014
  6. CITICOLINE (CITICOLINE) [Concomitant]

REACTIONS (2)
  - GYNAECOMASTIA [None]
  - BREAST PAIN [None]
